FAERS Safety Report 9701292 (Version 1)
Quarter: 2013Q4

REPORT INFORMATION
  Report Type: Spontaneous
  Country: US (occurrence: US)
  Receive Date: 20131121
  Receipt Date: 20131121
  Transmission Date: 20140711
  Serious: No
  Sender: FDA-Public Use
  Company Number: US-GILEAD-2008-0016420

PATIENT
  Sex: Male

DRUGS (3)
  1. LETAIRIS [Suspect]
     Indication: PULMONARY ARTERIAL HYPERTENSION
  2. SPIRONOLACTONE [Concomitant]
     Indication: FLUID RETENTION
  3. FUROSEMIDE [Concomitant]
     Indication: FLUID RETENTION

REACTIONS (2)
  - Swelling [None]
  - Fluid retention [None]
